FAERS Safety Report 8518189-1 (Version None)
Quarter: 2012Q3

REPORT INFORMATION
  Report Type: 
  Country: None (occurrence: None)
  Receive Date: 20120718
  Receipt Date: 20111107
  Transmission Date: 20120928
  Serious: No
  Sender: FDA-Public Use
  Company Number: US-BRISTOL-MYERS SQUIBB COMPANY-16190043

PATIENT
  Age: 84 Year
  Sex: Female

DRUGS (2)
  1. COUMADIN [Suspect]
     Indication: PROPHYLAXIS
  2. LOVENOX [Suspect]
     Indication: PROPHYLAXIS
     Dates: start: 20110601

REACTIONS (2)
  - NASOPHARYNGITIS [None]
  - INFLUENZA [None]
